FAERS Safety Report 12644325 (Version 1)
Quarter: 2016Q3

REPORT INFORMATION
  Report Type: Report from Study
  Country: BR (occurrence: BR)
  Receive Date: 20160811
  Receipt Date: 20160811
  Transmission Date: 20161109
  Serious: Yes (Hospitalization, Other)
  Sender: FDA-Public Use
  Company Number: BR-ABBVIE-16K-020-1695084-00

PATIENT
  Sex: Female
  Weight: 91 kg

DRUGS (3)
  1. FERROUS SULFATE. [Concomitant]
     Active Substance: FERROUS SULFATE
     Indication: ANAEMIA
     Route: 048
     Dates: start: 20160707
  2. CERAZETTE [Concomitant]
     Active Substance: DESOGESTREL
     Indication: UTERINE DISORDER
     Route: 048
     Dates: start: 20160622
  3. HUMIRA [Suspect]
     Active Substance: ADALIMUMAB
     Indication: PSORIATIC ARTHROPATHY
     Route: 058
     Dates: start: 20141201, end: 20151001

REACTIONS (4)
  - Anaemia [Not Recovered/Not Resolved]
  - Peripheral swelling [Recovered/Resolved]
  - Haemorrhage [Not Recovered/Not Resolved]
  - Injection site pruritus [Recovered/Resolved]
